FAERS Safety Report 14343085 (Version 1)
Quarter: 2017Q4

REPORT INFORMATION
  Report Type: Spontaneous
  Country: CA (occurrence: CA)
  Receive Date: 20171231
  Receipt Date: 20171231
  Transmission Date: 20180321
  Serious: Yes (Congenital Anomaly)
  Sender: FDA-Public Use
  Company Number: None

PATIENT
  Age: 30 Year
  Sex: Female
  Weight: 81 kg

DRUGS (1)
  1. PLAN B [Suspect]
     Active Substance: LEVONORGESTREL
     Indication: PRODUCT USED FOR UNKNOWN INDICATION
     Dosage: ?          QUANTITY:1 CAPSULE(S);OTHER FREQUENCY:ONCE;?
     Route: 048
     Dates: start: 20171112

REACTIONS (2)
  - Anembryonic gestation [None]
  - Drug ineffective [None]

NARRATIVE: CASE EVENT DATE: 20171227
